FAERS Safety Report 25510897 (Version 1)
Quarter: 2025Q3

REPORT INFORMATION
  Report Type: Spontaneous
  Country: JP (occurrence: JP)
  Receive Date: 20250703
  Receipt Date: 20250703
  Transmission Date: 20251020
  Serious: Yes (Death, Other)
  Sender: GUERBET
  Company Number: JP-GUERBETG_JAPAN-JP-20250113

PATIENT
  Age: 70 Year
  Sex: Male

DRUGS (1)
  1. LIPIODOL [Suspect]
     Active Substance: ETHIODIZED OIL
     Indication: Transcatheter arterial chemoembolisation
     Route: 013

REACTIONS (3)
  - Leiomyosarcoma [Fatal]
  - Ascites [Unknown]
  - Pleural effusion [Unknown]
